FAERS Safety Report 23749616 (Version 2)
Quarter: 2024Q2

REPORT INFORMATION
  Report Type: Other
  Country: US (occurrence: US)
  Receive Date: 20240416
  Receipt Date: 20240516
  Transmission Date: 20240715
  Serious: Yes (Hospitalization)
  Sender: FDA-Public Use
  Company Number: US-TRAVERE-2024TVT00360

PATIENT
  Age: 65 Year
  Sex: Female

DRUGS (13)
  1. FILSPARI [Suspect]
     Active Substance: SPARSENTAN
     Indication: Proteinuria
     Route: 048
     Dates: start: 202312
  2. FILSPARI [Suspect]
     Active Substance: SPARSENTAN
     Indication: IgA nephropathy
     Route: 048
  3. WIXELA INHUB [Concomitant]
     Active Substance: FLUTICASONE PROPIONATE\SALMETEROL XINAFOATE
  4. AMLODIPINE [Concomitant]
     Active Substance: AMLODIPINE BESYLATE
  5. ELIQUIS [Concomitant]
     Active Substance: APIXABAN
  6. LIPITOR [Concomitant]
     Active Substance: ATORVASTATIN CALCIUM
  7. BUDESONIDE [Concomitant]
     Active Substance: BUDESONIDE
  8. CARVEDILOL [Concomitant]
     Active Substance: CARVEDILOL
  9. FARXIGA [Concomitant]
     Active Substance: DAPAGLIFLOZIN PROPANEDIOL
  10. HYDROXYUREA [Concomitant]
     Active Substance: HYDROXYUREA
  11. TORSEMIDE [Concomitant]
     Active Substance: TORSEMIDE
  12. OZEMPIC [Concomitant]
     Active Substance: SEMAGLUTIDE
  13. TARPEYO [Concomitant]
     Active Substance: BUDESONIDE

REACTIONS (1)
  - Respiration abnormal [Unknown]
